FAERS Safety Report 8003793-X (Version None)
Quarter: 2011Q4

REPORT INFORMATION
  Report Type: 
  Country: None (occurrence: None)
  Receive Date: 20111222
  Receipt Date: 20111220
  Transmission Date: 20120403
  Serious: No
  Sender: FDA-Public Use
  Company Number: US-BAYER-2011-122825

PATIENT

DRUGS (3)
  1. TRAMADOL HCL [Concomitant]
  2. ALEVE (CAPLET) [Suspect]
     Dosage: 3 DF, UNK
     Route: 048
  3. VICODIN [Concomitant]

REACTIONS (1)
  - NO ADVERSE EVENT [None]
